FAERS Safety Report 13473325 (Version 1)
Quarter: 2017Q2

REPORT INFORMATION
  Report Type: Spontaneous
  Country: US (occurrence: US)
  Receive Date: 20170424
  Receipt Date: 20170424
  Transmission Date: 20170830
  Serious: No
  Sender: FDA-Public Use
  Company Number: US-ASTELLAS-2016US036078

PATIENT
  Age: 52 Year
  Sex: Female

DRUGS (1)
  1. LEXISCAN [Suspect]
     Active Substance: REGADENOSON
     Indication: PRODUCT USED FOR UNKNOWN INDICATION
     Dosage: 4MG/5ML, OTHER (ONCE)
     Route: 042
     Dates: start: 20160726, end: 20160726

REACTIONS (3)
  - Dysgeusia [Unknown]
  - Tongue disorder [Unknown]
  - Sensation of foreign body [Unknown]
